FAERS Safety Report 10162673 (Version 1)
Quarter: 2014Q2

REPORT INFORMATION
  Report Type: Spontaneous
  Country: US (occurrence: US)
  Receive Date: 20140509
  Receipt Date: 20140509
  Transmission Date: 20141212
  Serious: No
  Sender: FDA-Public Use
  Company Number: US-B.I. PHARMACEUTICALS,INC./RIDGEFIELD-2014-BI-20006BP

PATIENT
  Sex: Female

DRUGS (2)
  1. PRADAXA [Suspect]
     Indication: CREST SYNDROME
     Route: 048
  2. PRADAXA [Suspect]
     Indication: THROMBOSIS

REACTIONS (2)
  - Off label use [Unknown]
  - Off label use [Unknown]
